FAERS Safety Report 10176122 (Version 1)
Quarter: 2014Q2

REPORT INFORMATION
  Report Type: Spontaneous
  Country: US (occurrence: None)
  Receive Date: 20140514
  Receipt Date: 20140514
  Transmission Date: 20141212
  Serious: Yes (Hospitalization, Other)
  Sender: FDA-Public Use
  Company Number: 2010S1000539

PATIENT
  Age: 74 Year
  Sex: Female

DRUGS (6)
  1. FLEET PHOSPHO-SODA ORAL SALINE LAXATIVE, GINGER-LEMON FLAVOR [Suspect]
     Indication: COLONOSCOPY
     Route: 048
     Dates: start: 20081005, end: 20081006
  2. LEVOTHYROID [Concomitant]
  3. LISINOPRIL/HYDROCHLOROTHIAZIDE [Concomitant]
  4. SIMVASTATIN (SIMVASTATIN) [Concomitant]
  5. FERROUS SULFATE (FERROUS SULFATE) [Concomitant]
  6. ASPIRIN (ACETYLSALICYLIC ACID) [Concomitant]

REACTIONS (16)
  - Large intestine polyp [None]
  - Hydronephrosis [None]
  - Quality of life decreased [None]
  - Renal failure acute [None]
  - Dehydration [None]
  - Gastrointestinal stoma output increased [None]
  - Dyspnoea exertional [None]
  - Postoperative wound complication [None]
  - Induration [None]
  - Ureteric obstruction [None]
  - Nephrogenic anaemia [None]
  - Renal failure chronic [None]
  - Hypotension [None]
  - Skin discolouration [None]
  - Enterovesical fistula [None]
  - Infection [None]
